FAERS Safety Report 23986774 (Version 2)
Quarter: 2024Q3

REPORT INFORMATION
  Report Type: Spontaneous
  Country: US (occurrence: US)
  Receive Date: 20240618
  Receipt Date: 20240814
  Transmission Date: 20241017
  Serious: No
  Sender: CALLIDITAS THERAPEUTICS
  Company Number: US-Calliditas-2024CAL01049

PATIENT
  Age: 31 Year
  Sex: Male

DRUGS (1)
  1. TARPEYO [Suspect]
     Active Substance: BUDESONIDE
     Indication: Haematuria
     Route: 048
     Dates: start: 20240517

REACTIONS (7)
  - Off label use [Unknown]
  - Product residue present [Unknown]
  - Prescribed underdose [Unknown]
  - Visual impairment [Unknown]
  - Vision blurred [Unknown]
  - Night blindness [Unknown]
  - Blood pressure increased [Unknown]
